FAERS Safety Report 4393677-0 (Version None)
Quarter: 2004Q3

REPORT INFORMATION
  Report Type: 
  Country: None (occurrence: None)
  Receive Date: 20040709
  Receipt Date: 20040709
  Transmission Date: 20050211
  Serious: Yes (Death)
  Sender: FDA-Public Use
  Company Number: None

PATIENT
  Age: 31 Year
  Sex: Female

DRUGS (5)
  1. RIFAMPIN [Suspect]
  2. ETHAMBUTOL HCL [Suspect]
  3. PYRAZINAMIDE [Suspect]
  4. ISONIAZID [Suspect]
  5. VITAMIN B6 [Suspect]

REACTIONS (9)
  - CHILLS [None]
  - COMA [None]
  - DRUG INTOLERANCE [None]
  - FATIGUE [None]
  - JAUNDICE [None]
  - NIGHT SWEATS [None]
  - PYREXIA [None]
  - SOMNOLENCE [None]
  - SPEECH DISORDER [None]
